FAERS Safety Report 17797605 (Version 1)
Quarter: 2020Q2

REPORT INFORMATION
  Report Type: Spontaneous
  Country: US (occurrence: US)
  Receive Date: 20200515
  Receipt Date: 20200515
  Transmission Date: 20200714
  Serious: No
  Sender: FDA-Public Use
  Company Number: None

PATIENT
  Age: 38 Year
  Sex: Female
  Weight: 94.32 kg

DRUGS (6)
  1. MACROBID [Suspect]
     Active Substance: NITROFURANTOIN\NITROFURANTOIN MONOHYDRATE
     Indication: URINARY TRACT INFECTION
     Dosage: ?          QUANTITY:1 CAPSULE(S);?
     Route: 048
  2. XANAX [Concomitant]
     Active Substance: ALPRAZOLAM
  3. MORPHINE [Concomitant]
     Active Substance: MORPHINE
  4. MARIJUANA [Concomitant]
     Active Substance: CANNABIS SATIVA SUBSP. INDICA TOP
  5. OXYCODONE [Concomitant]
     Active Substance: OXYCODONE
  6. AMBIEN [Concomitant]
     Active Substance: ZOLPIDEM TARTRATE

REACTIONS (2)
  - Pruritus [None]
  - Nausea [None]

NARRATIVE: CASE EVENT DATE: 20200515
